FAERS Safety Report 5526451-X (Version None)
Quarter: 2007Q4

REPORT INFORMATION
  Report Type: 
  Country: None (occurrence: None)
  Receive Date: 20071121
  Receipt Date: 20071121
  Transmission Date: 20080405
  Serious: Yes (Death)
  Sender: FDA-Public Use
  Company Number: None

PATIENT
  Sex: Female

DRUGS (1)
  1. VELCADE [Suspect]
     Indication: ACUTE LYMPHOCYTIC LEUKAEMIA
     Dosage: 1.3MG/M2/DAY DAY 1 IV
     Route: 042
     Dates: start: 20071023

REACTIONS (20)
  - ALDOLASE INCREASED [None]
  - ARRHYTHMIA [None]
  - BACILLUS INFECTION [None]
  - HEPATIC INFECTION FUNGAL [None]
  - HEPATIC NECROSIS [None]
  - HYPOPHOSPHATAEMIA [None]
  - HYPOTENSION [None]
  - INTRACARDIAC THROMBUS [None]
  - LIVER DISORDER [None]
  - LOSS OF CONSCIOUSNESS [None]
  - LUNG DISORDER [None]
  - MYOSITIS [None]
  - PAIN [None]
  - PLEURAL EFFUSION [None]
  - PULMONARY MYCOSIS [None]
  - PULMONARY NECROSIS [None]
  - RHABDOMYOLYSIS [None]
  - SHOCK [None]
  - STREPTOCOCCAL INFECTION [None]
  - VENTRICULAR TACHYCARDIA [None]
